FAERS Safety Report 21253558 (Version 1)
Quarter: 2022Q3

REPORT INFORMATION
  Report Type: Spontaneous
  Country: US (occurrence: US)
  Receive Date: 20220825
  Receipt Date: 20220825
  Transmission Date: 20221027
  Serious: No
  Sender: FDA-Public Use
  Company Number: US-LUNDBECK-DKLU3050806

PATIENT
  Age: 84 Year
  Sex: Female
  Weight: 58.5 kg

DRUGS (1)
  1. NORTHERA [Suspect]
     Active Substance: DROXIDOPA
     Indication: Illness
     Route: 048

REACTIONS (2)
  - Cardiac therapeutic procedure [Unknown]
  - Hypertension [Unknown]
